FAERS Safety Report 14461423 (Version 1)
Quarter: 2018Q1

REPORT INFORMATION
  Report Type: Spontaneous
  Country: US (occurrence: US)
  Receive Date: 20180130
  Receipt Date: 20180130
  Transmission Date: 20180509
  Serious: Yes (Other)
  Sender: FDA-Public Use
  Company Number: US-PFIZER INC-2018035467

PATIENT
  Age: 67 Year

DRUGS (1)
  1. NEURONTIN [Suspect]
     Active Substance: GABAPENTIN
     Indication: PERIPHERAL SENSORIMOTOR NEUROPATHY
     Dosage: UNK

REACTIONS (1)
  - Neurotoxicity [Recovered/Resolved]
